FAERS Safety Report 4317574-1 (Version None)
Quarter: 2004Q1

REPORT INFORMATION
  Report Type: 
  Country: None (occurrence: None)
  Receive Date: 20040312
  Receipt Date: 20040303
  Transmission Date: 20041129
  Serious: Yes (Death, Disabling)
  Sender: FDA-Public Use
  Company Number: 2003121920

PATIENT
  Age: 75 Year
  Sex: Male
  Weight: 80 kg

DRUGS (7)
  1. NEURONTIN [Suspect]
     Indication: NEUROPATHIC PAIN
     Dosage: 900 MG (TID), ORAL
     Route: 048
     Dates: start: 20031113, end: 20031201
  2. AMITRIPTYLINE HCL [Concomitant]
  3. FENTANYL [Concomitant]
  4. ETORICOXIB (ETORICOXIB) [Concomitant]
  5. PREDNISONE [Concomitant]
  6. DIAZEPAM [Concomitant]
  7. MORPHINE [Concomitant]

REACTIONS (5)
  - CELLULITIS [None]
  - COMPLETED SUICIDE [None]
  - DEAFNESS [None]
  - LEUKOERYTHROBLASTIC ANAEMIA [None]
  - LIVER DISORDER [None]
